FAERS Safety Report 10597813 (Version 2)
Quarter: 2014Q4

REPORT INFORMATION
  Report Type: Spontaneous
  Country: FR (occurrence: FR)
  Receive Date: 20141121
  Receipt Date: 20141121
  Transmission Date: 20150529
  Serious: Yes (Death, Hospitalization, Other)
  Sender: FDA-Public Use
  Company Number: FR-CELGENE-056-50794-14090174

PATIENT
  Age: 64 Year
  Sex: Female

DRUGS (37)
  1. FLAGYL [Suspect]
     Active Substance: METRONIDAZOLE\METRONIDAZOLE HYDROCHLORIDE
     Route: 048
     Dates: start: 201311, end: 201311
  2. PANFUREX [Concomitant]
     Active Substance: NIFUROXAZIDE
     Indication: PRODUCT USED FOR UNKNOWN INDICATION
     Route: 065
  3. OGASTORO [Concomitant]
     Active Substance: LANSOPRAZOLE
     Indication: PRODUCT USED FOR UNKNOWN INDICATION
     Dosage: 400 GRAM
     Route: 065
  4. CORTANCYL [Concomitant]
     Active Substance: PREDNISONE
     Route: 065
     Dates: start: 20130902, end: 20130908
  5. CORTANCYL [Concomitant]
     Active Substance: PREDNISONE
     Route: 065
     Dates: start: 20130909, end: 20130915
  6. TRAMADOL [Concomitant]
     Active Substance: TRAMADOL
     Route: 065
     Dates: start: 20130909, end: 20130915
  7. TRAMADOL [Concomitant]
     Active Substance: TRAMADOL
     Route: 065
     Dates: start: 20130916
  8. TRAMADOL [Concomitant]
     Active Substance: TRAMADOL
     Route: 065
     Dates: start: 20130826, end: 20130901
  9. ROCEPHINE [Suspect]
     Active Substance: CEFTRIAXONE SODIUM
     Indication: COLITIS
     Route: 048
     Dates: start: 201310, end: 20131111
  10. ROCEPHINE [Suspect]
     Active Substance: CEFTRIAXONE SODIUM
     Route: 048
     Dates: start: 20140414, end: 20140428
  11. FLAGYL [Suspect]
     Active Substance: METRONIDAZOLE\METRONIDAZOLE HYDROCHLORIDE
     Indication: COLITIS
     Route: 048
     Dates: start: 201310, end: 20131111
  12. ENDOTELON [Concomitant]
     Active Substance: GRAPE SEED EXTRACT
     Indication: PRODUCT USED FOR UNKNOWN INDICATION
     Route: 065
  13. OXYCONTIN [Concomitant]
     Active Substance: OXYCODONE HYDROCHLORIDE
     Route: 065
  14. PARAFIN OIL [Concomitant]
     Indication: PRODUCT USED FOR UNKNOWN INDICATION
     Dosage: 500 MILLIGRAM
     Route: 065
  15. CORTANCYL [Concomitant]
     Active Substance: PREDNISONE
     Indication: PRODUCT USED FOR UNKNOWN INDICATION
     Route: 065
  16. TRAMADOL [Concomitant]
     Active Substance: TRAMADOL
     Route: 065
     Dates: start: 20130902, end: 20130908
  17. AZACITIDINE. [Suspect]
     Active Substance: AZACITIDINE
     Indication: MYELODYSPLASTIC SYNDROME
     Route: 058
     Dates: start: 20130930, end: 201310
  18. ROCEPHINE [Suspect]
     Active Substance: CEFTRIAXONE SODIUM
     Route: 048
     Dates: start: 20140225, end: 20140228
  19. FLAGYL [Suspect]
     Active Substance: METRONIDAZOLE\METRONIDAZOLE HYDROCHLORIDE
     Route: 048
     Dates: start: 20140414, end: 20140428
  20. TAZOCILLIN [Suspect]
     Active Substance: PIPERACILLIN SODIUM\TAZOBACTAM SODIUM
     Indication: COLITIS
     Route: 041
  21. DUSPATALIN [Concomitant]
     Active Substance: MEBEVERINE HYDROCHLORIDE
     Indication: PRODUCT USED FOR UNKNOWN INDICATION
     Route: 065
  22. CORTANCYL [Concomitant]
     Active Substance: PREDNISONE
     Route: 065
     Dates: start: 20130826, end: 20130901
  23. TRAMADOL [Concomitant]
     Active Substance: TRAMADOL
     Indication: PRODUCT USED FOR UNKNOWN INDICATION
     Route: 065
  24. AZACITIDINE. [Suspect]
     Active Substance: AZACITIDINE
     Route: 058
     Dates: start: 20140227, end: 20140304
  25. TAZOCILLIN [Suspect]
     Active Substance: PIPERACILLIN SODIUM\TAZOBACTAM SODIUM
     Indication: ESCHERICHIA INFECTION
  26. ZYVOXID [Suspect]
     Active Substance: LINEZOLID
     Indication: STAPHYLOCOCCAL BACTERAEMIA
     Route: 048
     Dates: start: 20140303, end: 20140312
  27. CACIT [Concomitant]
     Active Substance: CALCIUM\VITAMIN D
     Indication: PRODUCT USED FOR UNKNOWN INDICATION
     Route: 065
  28. INEXIUM [Concomitant]
     Active Substance: ESOMEPRAZOLE
     Indication: PRODUCT USED FOR UNKNOWN INDICATION
     Route: 065
  29. OXYCONTIN [Concomitant]
     Active Substance: OXYCODONE HYDROCHLORIDE
     Route: 065
  30. ACTISKENAN [Concomitant]
     Active Substance: MORPHINE SULFATE
     Indication: RHEUMATOID ARTHRITIS
     Route: 065
     Dates: start: 20131005
  31. ROCEPHINE [Suspect]
     Active Substance: CEFTRIAXONE SODIUM
     Route: 048
     Dates: start: 201311, end: 201311
  32. FLAGYL [Suspect]
     Active Substance: METRONIDAZOLE\METRONIDAZOLE HYDROCHLORIDE
     Route: 048
     Dates: start: 20140225, end: 20140228
  33. SKENAN [Concomitant]
     Active Substance: MORPHINE SULFATE
     Indication: RHEUMATOID ARTHRITIS
     Route: 065
     Dates: start: 20131005
  34. AZACITIDINE. [Suspect]
     Active Substance: AZACITIDINE
     Route: 058
     Dates: start: 20131114, end: 20131117
  35. LAMALINE [Concomitant]
     Active Substance: ACETAMINOPHEN\CAFFEINE\OPIUM
     Indication: PRODUCT USED FOR UNKNOWN INDICATION
     Route: 065
  36. OXYCONTIN [Concomitant]
     Active Substance: OXYCODONE HYDROCHLORIDE
     Indication: PRODUCT USED FOR UNKNOWN INDICATION
     Route: 065
  37. CORTANCYL [Concomitant]
     Active Substance: PREDNISONE
     Route: 065
     Dates: start: 20130916

REACTIONS (17)
  - Staphylococcal infection [Unknown]
  - Fall [Unknown]
  - Diverticulitis [Unknown]
  - Arthritis [Unknown]
  - Escherichia sepsis [Fatal]
  - Injection site haematoma [Unknown]
  - Myelitis [Unknown]
  - Diverticulitis [Fatal]
  - Subarachnoid haemorrhage [Unknown]
  - Constipation [Unknown]
  - Abscess intestinal [Unknown]
  - Phlebitis [Unknown]
  - Clostridium difficile infection [Unknown]
  - Encephalopathy [Fatal]
  - Anaemia [Unknown]
  - Diverticulitis [Unknown]
  - Pancytopenia [Fatal]

NARRATIVE: CASE EVENT DATE: 20131012
